FAERS Safety Report 5302228-5 (Version None)
Quarter: 2007Q2

REPORT INFORMATION
  Report Type: 
  Country: None (occurrence: None)
  Receive Date: 20070419
  Receipt Date: 20060327
  Transmission Date: 20071010
  Serious: No
  Sender: FDA-Public Use
  Company Number: US-GLAXOSMITHKLINE-A0600147A

PATIENT
  Sex: Female

DRUGS (2)
  1. LITHIUM CARBONATE [Suspect]
     Route: 048
  2. SEROQUEL [Suspect]

REACTIONS (2)
  - BIPOLAR DISORDER [None]
  - DRUG INEFFECTIVE [None]
